FAERS Safety Report 8372488-5 (Version None)
Quarter: 2012Q2

REPORT INFORMATION
  Report Type: 
  Country: None (occurrence: None)
  Receive Date: 20120521
  Receipt Date: 20120516
  Transmission Date: 20120825
  Serious: Yes (Other)
  Sender: FDA-Public Use
  Company Number: US-PFIZER INC-2011024468

PATIENT
  Sex: Female
  Weight: 70.295 kg

DRUGS (1)
  1. PRISTIQ [Suspect]
     Indication: DEPRESSION
     Dosage: 50 MG, UNKNOWN FREQUENCY
     Route: 048
     Dates: start: 20100101, end: 20101101

REACTIONS (10)
  - IRRITABILITY [None]
  - DISSOCIATION [None]
  - CONVULSION [None]
  - INSOMNIA [None]
  - DRUG WITHDRAWAL SYNDROME [None]
  - DIARRHOEA [None]
  - PARAESTHESIA [None]
  - DEPRESSION [None]
  - ANXIETY [None]
  - CRYING [None]
